FAERS Safety Report 5256575-6 (Version None)
Quarter: 2007Q1

REPORT INFORMATION
  Report Type: 
  Country: None (occurrence: None)
  Receive Date: 20070306
  Receipt Date: 20070219
  Transmission Date: 20070707
  Serious: Yes (Other)
  Sender: FDA-Public Use
  Company Number: PHBS2007JP03367

PATIENT

DRUGS (1)
  1. TEGRETOL [Suspect]
     Indication: HYPOAESTHESIA
     Dosage: 1200 MG/DAY
     Route: 048

REACTIONS (8)
  - CEREBELLAR INFARCTION [None]
  - DIZZINESS POSTURAL [None]
  - DRUG LEVEL INCREASED [None]
  - FALL [None]
  - HYPOREFLEXIA [None]
  - INCOHERENT [None]
  - MUSCULAR WEAKNESS [None]
  - TRANSIENT ISCHAEMIC ATTACK [None]
